FAERS Safety Report 25877908 (Version 1)
Quarter: 2025Q4

REPORT INFORMATION
  Report Type: Report from Study
  Country: ZA (occurrence: ZA)
  Receive Date: 20251003
  Receipt Date: 20251003
  Transmission Date: 20260119
  Serious: Yes (Other)
  Sender: ROCHE
  Company Number: ZA-ROCHE-10000394766

PATIENT
  Sex: Male

DRUGS (1)
  1. OCREVUS [Suspect]
     Active Substance: OCRELIZUMAB
     Indication: Multiple sclerosis
     Dosage: THEREAFTER 600MG EVERY AFTER 6 MONTHS
     Route: 042

REACTIONS (5)
  - Magnetic resonance imaging spinal abnormal [Unknown]
  - Intervertebral disc protrusion [Unknown]
  - Cerebral disorder [Unknown]
  - Spinal cord infarction [Unknown]
  - Nasal septum deviation [Unknown]
